FAERS Safety Report 24128901 (Version 1)
Quarter: 2024Q3

REPORT INFORMATION
  Report Type: Spontaneous
  Country: US (occurrence: None)
  Receive Date: 20240722
  Receipt Date: 20240722
  Transmission Date: 20241017
  Serious: No
  Sender: Public
  Company Number: None

PATIENT
  Age: 76 Year
  Sex: Female
  Weight: 108.4 kg

DRUGS (10)
  1. PIQRAY [Suspect]
     Active Substance: ALPELISIB
     Indication: Metastases to bone
     Dosage: 300 MG DAILY ORAL
     Route: 048
     Dates: start: 20240612
  2. FUROSEMIDE [Concomitant]
     Active Substance: FUROSEMIDE
  3. PREGABALIN [Concomitant]
     Active Substance: PREGABALIN
  4. HYDROCHLOROTHIAZIDE [Concomitant]
     Active Substance: HYDROCHLOROTHIAZIDE
  5. CYCLOBENZAPRINE [Concomitant]
     Active Substance: CYCLOBENZAPRINE
  6. LOSARTAN [Concomitant]
     Active Substance: LOSARTAN
  7. OMEPRAZOLE [Concomitant]
     Active Substance: OMEPRAZOLE
  8. ELIQUIS [Concomitant]
     Active Substance: APIXABAN
  9. Prochlorperazine 10mg [Concomitant]
  10. LEVOTHYROXINE [Concomitant]
     Active Substance: LEVOTHYROXINE\LEVOTHYROXINE SODIUM

REACTIONS (2)
  - Peripheral swelling [None]
  - Therapy change [None]

NARRATIVE: CASE EVENT DATE: 20240722
